FAERS Safety Report 7811384-6 (Version None)
Quarter: 2011Q4

REPORT INFORMATION
  Report Type: 
  Country: None (occurrence: None)
  Receive Date: 20111013
  Receipt Date: 20111005
  Transmission Date: 20120403
  Serious: Yes (Other)
  Sender: FDA-Public Use
  Company Number: CA-PFIZER INC-2011242454

PATIENT
  Age: 55 Year
  Sex: Female
  Weight: 54.4 kg

DRUGS (1)
  1. PANTOPRAZOLE SODIUM [Suspect]
     Dosage: 2 DF, 1X/DAY

REACTIONS (5)
  - ANXIETY [None]
  - OESOPHAGEAL PAIN [None]
  - OROPHARYNGEAL PAIN [None]
  - TREMOR [None]
  - ABDOMINAL PAIN UPPER [None]
